FAERS Safety Report 17328704 (Version 1)
Quarter: 2020Q1

REPORT INFORMATION
  Report Type: Report from Study
  Country: DE (occurrence: DE)
  Receive Date: 20200127
  Receipt Date: 20200127
  Transmission Date: 20200409
  Serious: Yes (Death, Other)
  Sender: FDA-Public Use
  Company Number: DE-MYLANLABS-2020M1009009

PATIENT
  Age: 51 Year
  Sex: Female
  Weight: 51 kg

DRUGS (6)
  1. FLUOROURACIL. [Suspect]
     Active Substance: FLUOROURACIL
     Indication: COLORECTAL CANCER
     Dosage: 2960 MILLIGRAM (DAY 01)
     Route: 065
     Dates: start: 20150624, end: 20190829
  2. PANITUMUMAB [Suspect]
     Active Substance: PANITUMUMAB
     Indication: COLORECTAL CANCER
     Dosage: 330 MILLIGRAM
     Route: 042
     Dates: start: 20160721, end: 20161117
  3. PANITUMUMAB [Suspect]
     Active Substance: PANITUMUMAB
     Dosage: 288 MILLIGRAM
     Route: 042
     Dates: start: 20181218, end: 20190725
  4. CALCIUM FOLINATE [Suspect]
     Active Substance: LEUCOVORIN CALCIUM
     Indication: COLORECTAL CANCER
     Dosage: 296 MILLIGRAM (DAY 01)
     Route: 065
     Dates: start: 20150624, end: 20190725
  5. FLUOROURACIL. [Suspect]
     Active Substance: FLUOROURACIL
     Dosage: 1400 MILLIGRAM
     Route: 065
     Dates: start: 20190829
  6. PANITUMUMAB [Suspect]
     Active Substance: PANITUMUMAB
     Dosage: 336 MILLIGRAM
     Route: 042
     Dates: start: 20171220, end: 20180706

REACTIONS (3)
  - Vomiting [Recovered/Resolved]
  - Diarrhoea [Recovered/Resolved]
  - Death [Fatal]

NARRATIVE: CASE EVENT DATE: 20190111
